FAERS Safety Report 8382998-2 (Version None)
Quarter: 2012Q2

REPORT INFORMATION
  Report Type: 
  Country: None (occurrence: None)
  Receive Date: 20120524
  Receipt Date: 20120519
  Transmission Date: 20120825
  Serious: Yes (Other)
  Sender: FDA-Public Use
  Company Number: PHHY2010BR17292

PATIENT
  Sex: Female

DRUGS (3)
  1. DIOVAN [Suspect]
     Dosage: 2 DF(80MG) IN THE MORNING AND 2DF AT NIGHT
  2. DIOVAN [Suspect]
     Dosage: 160 MG, UNK
  3. DIOVAN [Suspect]
     Dosage: 80 MG, UNK

REACTIONS (6)
  - ABDOMINAL PAIN UPPER [None]
  - MALAISE [None]
  - ARRHYTHMIA [None]
  - SALIVARY HYPERSECRETION [None]
  - BLOOD PRESSURE INCREASED [None]
  - NAUSEA [None]
